FAERS Safety Report 6854145-7 (Version None)
Quarter: 2010Q3

REPORT INFORMATION
  Report Type: 
  Country: None (occurrence: None)
  Receive Date: 20100717
  Receipt Date: 20071227
  Transmission Date: 20110219
  Serious: No
  Sender: FDA-Public Use
  Company Number: US-PFIZER INC-2008000161

PATIENT
  Sex: Female
  Weight: 69.4 kg

DRUGS (5)
  1. CHANTIX [Suspect]
     Indication: SMOKING CESSATION THERAPY
     Dates: start: 20070101, end: 20071201
  2. LAMOTRIGINE [Concomitant]
  3. BUSPAR [Concomitant]
  4. NEURONTIN [Concomitant]
  5. PROLIXIN [Concomitant]

REACTIONS (2)
  - MALAISE [None]
  - VOMITING [None]
